FAERS Safety Report 4940051-1 (Version None)
Quarter: 2006Q1

REPORT INFORMATION
  Report Type: 
  Country: None (occurrence: None)
  Receive Date: 20060310
  Receipt Date: 20060228
  Transmission Date: 20060701
  Serious: Yes (Life-Threatening)
  Sender: FDA-Public Use
  Company Number: 2006AP01038

PATIENT
  Age: 28 Year
  Sex: Female

DRUGS (1)
  1. SEROQUEL [Suspect]
     Dosage: 100 MG TO 600 MG DAILY
     Route: 048

REACTIONS (2)
  - HEPATIC FAILURE [None]
  - LEUKOPENIA [None]
